FAERS Safety Report 11310396 (Version 1)
Quarter: 2015Q3

REPORT INFORMATION
  Report Type: Spontaneous
  Country: FR (occurrence: FR)
  Receive Date: 20150724
  Receipt Date: 20150724
  Transmission Date: 20151125
  Serious: Yes (Hospitalization)
  Sender: FDA-Public Use
  Company Number: FR-ABBVIE-15P-056-1432515-00

PATIENT
  Age: 28 Year
  Sex: Female

DRUGS (1)
  1. DEPAKOTE [Suspect]
     Active Substance: DIVALPROEX SODIUM
     Indication: PSYCHOTIC DISORDER
     Route: 048
     Dates: start: 20150519, end: 20150529

REACTIONS (4)
  - Nausea [Recovered/Resolved]
  - Altered state of consciousness [Recovered/Resolved]
  - Somnolence [Recovered/Resolved]
  - Vomiting [Recovered/Resolved]

NARRATIVE: CASE EVENT DATE: 20150529
